FAERS Safety Report 24280343 (Version 1)
Quarter: 2024Q3

REPORT INFORMATION
  Report Type: Spontaneous
  Country: GB (occurrence: GB)
  Receive Date: 20240904
  Receipt Date: 20240904
  Transmission Date: 20241017
  Serious: Yes (Other)
  Sender: ADVANZ PHARMA
  Company Number: GB-MHRA-TPP5059986C21091368YC1724325266485

PATIENT

DRUGS (11)
  1. PREDNISOLONE [Suspect]
     Active Substance: PREDNISOLONE
     Indication: Ill-defined disorder
     Dosage: 5 MG (5MG TABLET)
  2. ATORVASTATIN [Concomitant]
     Active Substance: ATORVASTATIN
     Indication: Ill-defined disorder
     Dosage: UNK, QD (TAKE ONE DAILY)
     Dates: start: 20231017
  3. LEVOTHYROXINE [Concomitant]
     Active Substance: LEVOTHYROXINE\LEVOTHYROXINE SODIUM
     Indication: Ill-defined disorder
     Dosage: UNK, QD (TAKE ONE EACH MORNING (TAKE ALONG WITH 50MCG))
     Dates: start: 20231017
  4. METFORMIN [Concomitant]
     Active Substance: METFORMIN HYDROCHLORIDE
     Indication: Ill-defined disorder
     Dosage: 4 DOSAGE FORM, BID (TWO TABLETS WITH BREAKFAST AND TWO WITH EVENING)
     Dates: start: 20231017
  5. RISPERIDONE [Concomitant]
     Active Substance: RISPERIDONE
     Indication: Ill-defined disorder
     Dosage: UNK, QD (ONE AT NIGHT)
     Dates: start: 20231017
  6. VENLAFAXINE [Concomitant]
     Active Substance: VENLAFAXINE HYDROCHLORIDE
     Indication: Ill-defined disorder
     Dosage: UNK, BID (ONE IN THE MORNING, TWO AT NIGHT)
     Dates: start: 20231017
  7. EVACAL [Concomitant]
     Indication: Ill-defined disorder
     Dosage: UNK, BID (TAKE ONE TWICE DAILY)
     Dates: start: 20231114
  8. DULOXETINE [Concomitant]
     Active Substance: DULOXETINE
     Indication: Ill-defined disorder
     Dosage: UNK, QD (1 DAILY FOR PAIN)
     Dates: start: 20240619
  9. DULOXETINE [Concomitant]
     Active Substance: DULOXETINE
     Indication: Pain
  10. FERRIC MALTOL [Concomitant]
     Active Substance: FERRIC MALTOL
     Indication: Ill-defined disorder
     Dosage: UNK UNK, BID (TAKE ONE TWICE DAILY)
     Dates: start: 20240715
  11. CETRABEN [Concomitant]
     Indication: Ill-defined disorder
     Dosage: UNK (USE AS DIRECTED)
     Dates: start: 20220919, end: 20240619

REACTIONS (1)
  - Acute psychosis [Recovered/Resolved]
